FAERS Safety Report 7722962-7 (Version None)
Quarter: 2011Q3

REPORT INFORMATION
  Report Type: 
  Country: None (occurrence: None)
  Receive Date: 20110901
  Receipt Date: 20110820
  Transmission Date: 20111222
  Serious: Yes (Other)
  Sender: FDA-Public Use
  Company Number: US-JNJFOC-20110801068

PATIENT
  Sex: Female
  Weight: 84.82 kg

DRUGS (2)
  1. STELARA [Suspect]
     Indication: PSORIATIC ARTHROPATHY
     Route: 058
     Dates: start: 20110101
  2. ALL OTHER THERAPEUTIC PRODUCT [Concomitant]

REACTIONS (1)
  - CATARACT [None]
